FAERS Safety Report 9698028 (Version 1)
Quarter: 2013Q4

REPORT INFORMATION
  Report Type: Spontaneous
  Country: JP (occurrence: JP)
  Receive Date: 20131120
  Receipt Date: 20131120
  Transmission Date: 20140711
  Serious: Yes (Other)
  Sender: FDA-Public Use
  Company Number: JP-SA-2013SA116205

PATIENT
  Age: 51 Year
  Sex: Male

DRUGS (7)
  1. ELPLAT [Suspect]
     Indication: COLON CANCER
     Dosage: INFUSION
     Route: 041
     Dates: start: 201009
  2. CALCIUM LEVOFOLINATE [Suspect]
     Indication: COLON CANCER
     Dosage: INTRAVENOUS INFUSION
     Route: 041
     Dates: start: 201110
  3. CAMPTO [Suspect]
     Indication: COLON CANCER
     Route: 041
     Dates: start: 201110
  4. XELODA [Concomitant]
     Dates: start: 201009
  5. AVASTIN [Concomitant]
     Dates: start: 201009
  6. FLUOROURACIL [Concomitant]
     Dates: start: 201110
  7. VECTIBIX [Concomitant]
     Dates: start: 201202

REACTIONS (5)
  - Anorectal varices [Unknown]
  - Splenomegaly [Unknown]
  - Neutrophil count decreased [Unknown]
  - Nausea [Unknown]
  - Vomiting [Unknown]
